FAERS Safety Report 19881300 (Version 1)
Quarter: 2021Q3

REPORT INFORMATION
  Report Type: Report from Study
  Country: AR (occurrence: AR)
  Receive Date: 20210925
  Receipt Date: 20210925
  Transmission Date: 20211014
  Serious: Yes (Other)
  Sender: FDA-Public Use
  Company Number: NVSC2020AR260120

PATIENT
  Age: 69 Year
  Sex: Male

DRUGS (3)
  1. SERETIDE [Concomitant]
     Active Substance: FLUTICASONE PROPIONATE\SALMETEROL XINAFOATE
     Indication: CHRONIC OBSTRUCTIVE PULMONARY DISEASE
     Dosage: 1 DF
     Route: 065
  2. COSENTYX [Suspect]
     Active Substance: SECUKINUMAB
     Indication: PSORIATIC ARTHROPATHY
     Dosage: 150 MG, QMO
     Route: 058
     Dates: start: 20190411
  3. COSENTYX [Suspect]
     Active Substance: SECUKINUMAB
     Dosage: 300 MG, QMO (2 OF 150MG 3 MONTHS AGO)
     Route: 058

REACTIONS (17)
  - Spinal column injury [Unknown]
  - Gait disturbance [Unknown]
  - Back pain [Unknown]
  - Injury [Unknown]
  - Condition aggravated [Unknown]
  - Musculoskeletal disorder [Unknown]
  - Pain in extremity [Unknown]
  - Pain [Unknown]
  - Peripheral swelling [Not Recovered/Not Resolved]
  - Vitamin B12 increased [Unknown]
  - Product distribution issue [Unknown]
  - Mobility decreased [Unknown]
  - Dysstasia [Unknown]
  - Fall [Unknown]
  - Arthralgia [Recovering/Resolving]
  - Spinal pain [Unknown]
  - Product dose omission issue [Unknown]

NARRATIVE: CASE EVENT DATE: 202008
